FAERS Safety Report 11537983 (Version 2)
Quarter: 2015Q4

REPORT INFORMATION
  Report Type: Spontaneous
  Country: US (occurrence: US)
  Receive Date: 20150922
  Receipt Date: 20151013
  Transmission Date: 20160304
  Serious: No
  Sender: FDA-Public Use
  Company Number: US-PFIZER INC-2015315251

PATIENT
  Age: 61 Year
  Sex: Female
  Weight: 51 kg

DRUGS (3)
  1. LISINOPRIL. [Concomitant]
     Active Substance: LISINOPRIL
     Dosage: HALF A TABLET THAT WAS 6.2 MG
  2. ESTRING [Suspect]
     Active Substance: ESTRADIOL
     Dosage: 2 MG, UNK
     Dates: start: 201507
  3. LISINOPRIL. [Concomitant]
     Active Substance: LISINOPRIL
     Indication: HYPERTENSION
     Dosage: 12.5 MG, UNK
     Dates: start: 2010

REACTIONS (3)
  - Tendon discomfort [Not Recovered/Not Resolved]
  - Pain in extremity [Unknown]
  - Muscle strain [Not Recovered/Not Resolved]

NARRATIVE: CASE EVENT DATE: 20150916
